FAERS Safety Report 8520808 (Version 2)
Quarter: 2012Q4

REPORT INFORMATION
  Report Type: 
  Country: US (occurrence: US)
  Receive Date: 20120419
  Receipt Date: 20121120
  Transmission Date: 20130627
  Serious: No
  Sender: FDA-Public Use
  Company Number: US-ASTRAZENECA-2012SE14026

PATIENT
  Age: 59 Year
  Sex: Female

DRUGS (12)
  1. NEXIUM [Suspect]
     Route: 048
  2. SEROQUEL [Concomitant]
  3. HZT [Concomitant]
  4. DOXEPIN [Concomitant]
  5. AMITRIPTYLINE [Concomitant]
  6. ZOLPIDEM [Concomitant]
  7. PAXIL [Concomitant]
  8. METHADONE [Concomitant]
  9. PEPCID [Concomitant]
  10. ROLAIDS [Concomitant]
  11. TUMS [Concomitant]
  12. ZANTAC [Concomitant]

REACTIONS (11)
  - Malaise [Unknown]
  - Abdominal pain [Unknown]
  - Depression [Unknown]
  - Drug dose omission [Unknown]
  - Gastrooesophageal reflux disease [Unknown]
  - Dyspepsia [Unknown]
  - Abdominal discomfort [Unknown]
  - Anxiety [Unknown]
  - Panic attack [Unknown]
  - Post-traumatic stress disorder [Unknown]
  - Feeling abnormal [Unknown]
